FAERS Safety Report 25508466 (Version 1)
Quarter: 2025Q3

REPORT INFORMATION
  Report Type: Spontaneous
  Country: SG (occurrence: SG)
  Receive Date: 20250703
  Receipt Date: 20250703
  Transmission Date: 20251021
  Serious: Yes (Other)
  Sender: Haleon PLC
  Company Number: SG-HALEON-2250502

PATIENT
  Age: 52 Year
  Sex: Male

DRUGS (1)
  1. DICLOFENAC [Suspect]
     Active Substance: DICLOFENAC
     Indication: Gout

REACTIONS (6)
  - Anaphylactic reaction [Unknown]
  - Erythema [Unknown]
  - Pruritus [Unknown]
  - Vomiting [Unknown]
  - Swelling face [Unknown]
  - Dyspnoea [Unknown]

NARRATIVE: CASE EVENT DATE: 20220101
